FAERS Safety Report 20571688 (Version 3)
Quarter: 2022Q2

REPORT INFORMATION
  Report Type: Report from Study
  Country: JP (occurrence: JP)
  Receive Date: 20220309
  Receipt Date: 20220428
  Transmission Date: 20220721
  Serious: Yes (Hospitalization, Other)
  Sender: FDA-Public Use
  Company Number: JP-BRISTOL-MYERS SQUIBB COMPANY-BMS-2022-031837

PATIENT
  Age: 71 Year
  Sex: Male
  Weight: 75.9 kg

DRUGS (2)
  1. IPILIMUMAB [Suspect]
     Active Substance: IPILIMUMAB
     Indication: Non-small cell lung cancer recurrent
     Dosage: UNK, ONE TIME DOSE
     Route: 041
     Dates: start: 20210603, end: 20210603
  2. NIVOLUMAB [Suspect]
     Active Substance: NIVOLUMAB
     Indication: Non-small cell lung cancer recurrent
     Dosage: UNK, ONE TIME DOSE
     Route: 041
     Dates: start: 20210603, end: 20210603

REACTIONS (2)
  - Immune-mediated encephalitis [Recovered/Resolved with Sequelae]
  - Decreased appetite [Recovered/Resolved with Sequelae]

NARRATIVE: CASE EVENT DATE: 20210624
